FAERS Safety Report 9467681 (Version 2)
Quarter: 2013Q3

REPORT INFORMATION
  Report Type: Spontaneous
  Country: US (occurrence: US)
  Receive Date: 20130821
  Receipt Date: 20130822
  Transmission Date: 20140515
  Serious: No
  Sender: FDA-Public Use
  Company Number: US-JNJFOC-20130808726

PATIENT
  Sex: Female
  Weight: 68.04 kg

DRUGS (2)
  1. FENTANYL [Suspect]
     Indication: PROCEDURAL PAIN
     Route: 062
     Dates: start: 2004, end: 2004
  2. SYNTHROID [Concomitant]
     Indication: THYROID DISORDER
     Route: 048

REACTIONS (6)
  - Blood pressure decreased [Recovered/Resolved]
  - Incorrect drug administration rate [Unknown]
  - Off label use [Unknown]
  - Dizziness [Recovered/Resolved]
  - Drug hypersensitivity [Unknown]
  - Product quality issue [Unknown]
